FAERS Safety Report 7823690 (Version 3)
Quarter: 2016Q4

REPORT INFORMATION
  Report Type: Spontaneous
  Country: CN (occurrence: CN)
  Receive Date: 20110223
  Receipt Date: 20161124
  Transmission Date: 20170207
  Serious: Yes (Other)
  Sender: FDA-Public Use
  Company Number: CN-B.I. PHARMACEUTICALS,INC./RIDGEFIELD-2011-CS-00120CS

PATIENT
  Age: 27 Year
  Sex: Female

DRUGS (2)
  1. MOBIC [Suspect]
     Active Substance: MELOXICAM
     Indication: MENINGITIS
     Dosage: 1 TABLET
     Route: 048
     Dates: start: 20110128, end: 20110203
  2. COMMON COLDS SYNERGY [Suspect]
     Active Substance: THYMOL
     Indication: NASOPHARYNGITIS
     Route: 048
     Dates: start: 20110128, end: 20110203

REACTIONS (2)
  - Abortion [Unknown]
  - Exposure during pregnancy [None]

NARRATIVE: CASE EVENT DATE: 20110223
